FAERS Safety Report 4989757-9 (Version None)
Quarter: 2006Q2

REPORT INFORMATION
  Report Type: 
  Country: None (occurrence: None)
  Receive Date: 20060501
  Receipt Date: 20060420
  Transmission Date: 20061013
  Serious: Yes (Death)
  Sender: FDA-Public Use
  Company Number: 2006BI005845

PATIENT
  Age: 61 Year
  Sex: Female
  Weight: 52.1637 kg

DRUGS (1)
  1. AVONEX [Suspect]
     Indication: MULTIPLE SCLEROSIS
     Dosage: 30 UG;QW;IM
     Route: 030
     Dates: start: 20010901, end: 20021001

REACTIONS (1)
  - CARDIO-RESPIRATORY ARREST [None]
